FAERS Safety Report 8345987-X (Version None)
Quarter: 2012Q2

REPORT INFORMATION
  Report Type: 
  Country: None (occurrence: None)
  Receive Date: 20120509
  Receipt Date: 20120504
  Transmission Date: 20120825
  Serious: No
  Sender: FDA-Public Use
  Company Number: US-PFIZER INC-2012110342

PATIENT
  Sex: Female
  Weight: 67.12 kg

DRUGS (5)
  1. IBUPROFEN (ADVIL) [Suspect]
     Indication: BACK PAIN
     Dosage: 200 MG, AS NEEDED
     Route: 048
     Dates: start: 20120401, end: 20120401
  2. ADVIL LIQUI-GELS [Suspect]
     Indication: BACK PAIN
     Dosage: 200 MG, UNK
     Route: 048
  3. SYNTHROID [Concomitant]
     Indication: HYPOTHYROIDISM
     Dosage: 75 MG, 1X/DAY
  4. ADVIL LIQUI-GELS [Suspect]
     Indication: SCIATIC NERVE NEUROPATHY
  5. IBUPROFEN (ADVIL) [Suspect]
     Indication: SCIATIC NERVE NEUROPATHY

REACTIONS (1)
  - ABDOMINAL PAIN UPPER [None]
